FAERS Safety Report 6296175-2 (Version None)
Quarter: 2009Q3

REPORT INFORMATION
  Report Type: 
  Country: None (occurrence: None)
  Receive Date: 20090804
  Receipt Date: 20090728
  Transmission Date: 20100115
  Serious: Yes (Other)
  Sender: FDA-Public Use
  Company Number: US-JNJFOC-20090709066

PATIENT
  Sex: Female
  Weight: 81.65 kg

DRUGS (4)
  1. FENTANYL TRANSDERMAL SYSTEM [Suspect]
     Indication: OROPHARYNGEAL PAIN
     Route: 062
  2. CELEXA [Concomitant]
     Indication: DEPRESSION
     Route: 048
  3. AMBIEN [Concomitant]
     Indication: INSOMNIA
     Dosage: EACH NIGHT
     Route: 048
  4. PERCOCET [Concomitant]
     Indication: BREAKTHROUGH PAIN
     Dosage: 25/350 AS NEEDED
     Route: 048

REACTIONS (6)
  - DEPRESSION [None]
  - DEVICE LEAKAGE [None]
  - PAIN [None]
  - PRODUCT QUALITY ISSUE [None]
  - SKIN IRRITATION [None]
  - WRONG TECHNIQUE IN DRUG USAGE PROCESS [None]
